FAERS Safety Report 12634324 (Version 2)
Quarter: 2016Q3

REPORT INFORMATION
  Report Type: Spontaneous
  Country: US (occurrence: US)
  Receive Date: 20160809
  Receipt Date: 20160908
  Transmission Date: 20161109
  Serious: No
  Sender: FDA-Public Use
  Company Number: US-ELI_LILLY_AND_COMPANY-US201607008086

PATIENT
  Age: 54 Year
  Sex: Female
  Weight: 79.82 kg

DRUGS (15)
  1. REMODULIN [Suspect]
     Active Substance: TREPROSTINIL
     Dosage: 32 NG, Q 1 MINUTE
     Dates: start: 20160721
  2. AMBRISENTAN [Suspect]
     Active Substance: AMBRISENTAN
     Indication: PULMONARY ARTERIAL HYPERTENSION
     Dosage: 10 MG, QD
     Route: 065
     Dates: start: 20120702
  3. TAURINE [Concomitant]
     Active Substance: TAURINE
  4. REMODULIN [Suspect]
     Active Substance: TREPROSTINIL
     Indication: PULMONARY ARTERIAL HYPERTENSION
     Dosage: 10 NG, Q 1 MINUTE
     Route: 065
     Dates: start: 20160509
  5. ASPIRIN                            /00002701/ [Concomitant]
     Active Substance: ASPIRIN
  6. METOPROLOL. [Concomitant]
     Active Substance: METOPROLOL
  7. LISINOPRIL. [Concomitant]
     Active Substance: LISINOPRIL
  8. LIPITOR [Concomitant]
     Active Substance: ATORVASTATIN CALCIUM
  9. CURCUMIN [Concomitant]
     Active Substance: CURCUMIN
  10. ADCIRCA [Suspect]
     Active Substance: TADALAFIL
     Indication: PRODUCT USED FOR UNKNOWN INDICATION
     Dosage: UNK, UNKNOWN
     Route: 065
  11. FISH OIL [Concomitant]
     Active Substance: FISH OIL
  12. KLOR-CON [Concomitant]
     Active Substance: POTASSIUM CHLORIDE
  13. FUROSEMIDE. [Concomitant]
     Active Substance: FUROSEMIDE
  14. XANAX [Concomitant]
     Active Substance: ALPRAZOLAM
  15. NAC                                /00082801/ [Concomitant]

REACTIONS (4)
  - Application site swelling [Unknown]
  - Peripheral coldness [Unknown]
  - Application site erythema [Unknown]
  - Infusion site pain [Unknown]

NARRATIVE: CASE EVENT DATE: 20160517
